FAERS Safety Report 15378973 (Version 1)
Quarter: 2018Q3

REPORT INFORMATION
  Report Type: Spontaneous
  Country: US (occurrence: US)
  Receive Date: 20180913
  Receipt Date: 20180913
  Transmission Date: 20181010
  Serious: No
  Sender: FDA-Public Use
  Company Number: US-LPDUSPRD-20180574

PATIENT
  Sex: Female

DRUGS (1)
  1. INJECTAFER [Suspect]
     Active Substance: FERRIC CARBOXYMALTOSE
     Dosage: UNKNOWN
     Route: 042
     Dates: start: 20180329

REACTIONS (3)
  - Cough [Recovered/Resolved]
  - Nausea [Recovered/Resolved]
  - Saliva discolouration [Recovered/Resolved]

NARRATIVE: CASE EVENT DATE: 20180329
